FAERS Safety Report 24213715 (Version 2)
Quarter: 2024Q3

REPORT INFORMATION
  Report Type: Spontaneous
  Country: US (occurrence: US)
  Receive Date: 20240815
  Receipt Date: 20240826
  Transmission Date: 20241016
  Serious: No
  Sender: PFIZER
  Company Number: US-PFIZER INC-202400236930

PATIENT
  Age: 26 Year
  Sex: Female

DRUGS (1)
  1. EUCRISA [Suspect]
     Active Substance: CRISABOROLE
     Indication: Eczema
     Dosage: 1 APPLICATION TO AFFECTED AREAS AND FOR MAINTENANCE
     Route: 061

REACTIONS (1)
  - Drug ineffective [Unknown]
